FAERS Safety Report 8618539-1 (Version None)
Quarter: 2012Q3

REPORT INFORMATION
  Report Type: 
  Country: None (occurrence: None)
  Receive Date: 20120824
  Receipt Date: 20120820
  Transmission Date: 20120928
  Serious: No
  Sender: FDA-Public Use
  Company Number: US-PFIZER INC-2012203966

PATIENT
  Age: 63 Year
  Sex: Female
  Weight: 78.912 kg

DRUGS (3)
  1. LISINOPRIL [Concomitant]
     Indication: HYPERTENSION
     Dosage: 10 MG, UNK
  2. DILTIAZEM [Concomitant]
     Dosage: UNK
  3. PREMPRO [Suspect]
     Indication: POSTMENOPAUSE
     Dosage: 0.625/2.5 MG, 1X/DAY
     Route: 048

REACTIONS (5)
  - ABDOMINAL DISTENSION [None]
  - HOT FLUSH [None]
  - IRRITABILITY [None]
  - METRORRHAGIA [None]
  - DRUG INEFFECTIVE [None]
